FAERS Safety Report 21667803 (Version 2)
Quarter: 2022Q4

REPORT INFORMATION
  Report Type: Spontaneous
  Country: DE (occurrence: DE)
  Receive Date: 20221201
  Receipt Date: 20221214
  Transmission Date: 20230112
  Serious: Yes (Other)
  Sender: FDA-Public Use
  Company Number: DE-TEVA-2022-DE-2830842

PATIENT
  Age: 47 Year
  Sex: Female

DRUGS (10)
  1. CARBOPLATIN [Suspect]
     Active Substance: CARBOPLATIN
     Indication: Neuroendocrine tumour of the lung
     Route: 065
  2. PACLITAXEL [Suspect]
     Active Substance: PACLITAXEL
     Indication: Neuroendocrine tumour of the lung
     Route: 065
  3. PEMETREXED [Suspect]
     Active Substance: PEMETREXED
     Indication: Neuroendocrine tumour of the lung
     Route: 065
  4. CRIZOTINIB [Suspect]
     Active Substance: CRIZOTINIB
     Indication: Neuroendocrine tumour of the lung
     Route: 065
  5. ALECTINIB [Suspect]
     Active Substance: ALECTINIB
     Indication: Neuroendocrine tumour of the lung
     Route: 065
  6. CERITINIB [Suspect]
     Active Substance: CERITINIB
     Indication: Neuroendocrine tumour of the lung
     Route: 065
  7. BRIGATINIB [Suspect]
     Active Substance: BRIGATINIB
     Indication: Neuroendocrine tumour of the lung
     Route: 065
  8. LORLATINIB [Suspect]
     Active Substance: LORLATINIB
     Indication: Neuroendocrine tumour of the lung
     Route: 065
  9. ATEZOLIZUMAB [Suspect]
     Active Substance: ATEZOLIZUMAB
     Indication: Neuroendocrine tumour of the lung
     Route: 065
  10. BEVACIZUMAB [Suspect]
     Active Substance: BEVACIZUMAB
     Indication: Neuroendocrine tumour of the lung
     Route: 065

REACTIONS (2)
  - Drug ineffective [Unknown]
  - Drug resistance [Unknown]
